FAERS Safety Report 6176039-5 (Version None)
Quarter: 2009Q2

REPORT INFORMATION
  Report Type: 
  Country: None (occurrence: None)
  Receive Date: 20090501
  Receipt Date: 20090420
  Transmission Date: 20091009
  Serious: Yes (Other)
  Sender: FDA-Public Use
  Company Number: GB-ROCHE-629742

PATIENT
  Sex: Female

DRUGS (5)
  1. PEG-INTERFERON ALFA 2A (RO 25-8310) [Suspect]
     Indication: DRUG USE FOR UNKNOWN INDICATION
     Dosage: DATE OF LAST DOSE PRIOR TO SAE: 30 DECEMBER 2008.
     Route: 065
     Dates: end: 20090224
  2. RIBAVIRIN [Suspect]
     Indication: DRUG USE FOR UNKNOWN INDICATION
     Dosage: DATE OF LAST DOSE PRIOR TO SAE: 06 JANUARY 2009, FREQUENCY: OD.
     Route: 065
     Dates: end: 20090224
  3. FERROUS SULFATE TAB [Concomitant]
     Indication: ANAEMIA
  4. ARANESP [Concomitant]
     Indication: ANAEMIA
  5. FLUOXETINE [Concomitant]
     Indication: DEPRESSION

REACTIONS (3)
  - ASCITES [None]
  - HEPATIC FAILURE [None]
  - JAUNDICE [None]
